FAERS Safety Report 8765650 (Version 1)
Quarter: 2012Q4

REPORT INFORMATION
  Report Type: 
  Country: BR (occurrence: BR)
  Receive Date: 20120903
  Receipt Date: 20120903
  Transmission Date: 20130627
  Serious: Yes (Hospitalization, Other)
  Sender: FDA-Public Use
  Company Number: PHHY2012BR073733

PATIENT
  Age: 50 Year
  Sex: Male

DRUGS (3)
  1. BUDESONIDE, FORMOTEROL FUMARATE [Suspect]
  2. PNEUMOCOCCAL VACCINE [Concomitant]
     Dosage: 1 DF, UNK
  3. INFLUENZA VACCINE [Concomitant]
     Dosage: 1 DF, UNK

REACTIONS (4)
  - Chronic obstructive pulmonary disease [Recovering/Resolving]
  - Depression [Recovering/Resolving]
  - Dyspepsia [Unknown]
  - Dyspnoea at rest [Recovering/Resolving]
